FAERS Safety Report 6985248-4 (Version None)
Quarter: 2010Q3

REPORT INFORMATION
  Report Type: 
  Country: None (occurrence: None)
  Receive Date: 20100915
  Receipt Date: 20100903
  Transmission Date: 20110219
  Serious: Yes (Other)
  Sender: FDA-Public Use
  Company Number: US-JNJFOC-20100804935

PATIENT
  Sex: Female
  Weight: 24.95 kg

DRUGS (12)
  1. REMICADE [Suspect]
     Indication: CROHN'S DISEASE
     Route: 042
  2. REMICADE [Suspect]
     Route: 042
  3. BENADRYL [Suspect]
     Indication: PREMEDICATION
  4. TYLENOL [Concomitant]
     Indication: PREMEDICATION
  5. HYDROCORTISONE [Concomitant]
     Indication: INAPPROPRIATE ANTIDIURETIC HORMONE SECRETION
  6. CARAFATE [Concomitant]
  7. PREVACID [Concomitant]
  8. DEPAKOTE [Concomitant]
  9. ERYTHROMYCIN [Concomitant]
     Indication: GASTROINTESTINAL MOTILITY DISORDER
  10. CORTISONE ACETATE [Concomitant]
     Indication: INAPPROPRIATE ANTIDIURETIC HORMONE SECRETION
  11. TPN [Concomitant]
  12. SIMETHICONE [Concomitant]
     Indication: FLATULENCE

REACTIONS (4)
  - CONFUSIONAL STATE [None]
  - CONTUSION [None]
  - INFUSION RELATED REACTION [None]
  - TONGUE DRY [None]
